FAERS Safety Report 9492414 (Version 1)
Quarter: 2013Q3

REPORT INFORMATION
  Report Type: Other
  Country: JP (occurrence: JP)
  Receive Date: 20130830
  Receipt Date: 20130830
  Transmission Date: 20140515
  Serious: Yes (Other)
  Sender: FDA-Public Use
  Company Number: JP-BRISTOL-MYERS SQUIBB COMPANY-19204163

PATIENT
  Age: 6 Decade
  Sex: Female

DRUGS (2)
  1. WARFARIN SODIUM [Suspect]
  2. IGURATIMOD [Interacting]
     Route: 048

REACTIONS (5)
  - Occult blood positive [Unknown]
  - Anaemia [Recovered/Resolved]
  - Gingival bleeding [Recovered/Resolved]
  - Haemorrhage subcutaneous [Recovered/Resolved]
  - Drug interaction [Unknown]
